FAERS Safety Report 18227575 (Version 9)
Quarter: 2022Q1

REPORT INFORMATION
  Report Type: Report from Study
  Country: US (occurrence: US)
  Receive Date: 20200903
  Receipt Date: 20220124
  Transmission Date: 20220423
  Serious: Yes (Other)
  Sender: FDA-Public Use
  Company Number: US-SHIRE-US202028322

PATIENT
  Age: 62 Year
  Sex: Female
  Weight: 70 kg

DRUGS (55)
  1. HUMAN IMMUNOGLOBULIN G\HYALURONIDASE RECOMBINANT HUMAN [Suspect]
     Active Substance: HUMAN IMMUNOGLOBULIN G\HYALURONIDASE RECOMBINANT HUMAN
     Indication: Immunodeficiency common variable
     Dosage: 17.5 GRAM, Q2WEEKS
     Route: 058
     Dates: start: 20180227
  2. HUMAN IMMUNOGLOBULIN G\HYALURONIDASE RECOMBINANT HUMAN [Suspect]
     Active Substance: HUMAN IMMUNOGLOBULIN G\HYALURONIDASE RECOMBINANT HUMAN
     Dosage: 17.5 GRAM, Q2WEEKS
     Route: 058
     Dates: start: 20180405
  3. HUMAN IMMUNOGLOBULIN G\HYALURONIDASE RECOMBINANT HUMAN [Suspect]
     Active Substance: HUMAN IMMUNOGLOBULIN G\HYALURONIDASE RECOMBINANT HUMAN
     Dosage: 17.5 GRAM, Q2WEEKS
     Route: 058
     Dates: start: 20180306
  4. ARMOUR THYROID [Concomitant]
     Active Substance: THYROID, PORCINE
     Indication: Product used for unknown indication
     Route: 065
  5. ACIPHEX [Concomitant]
     Active Substance: RABEPRAZOLE SODIUM
     Indication: Product used for unknown indication
     Route: 065
  6. NEURONTIN [Concomitant]
     Active Substance: GABAPENTIN
     Indication: Product used for unknown indication
     Route: 065
  7. PROGESTERONE [Concomitant]
     Active Substance: PROGESTERONE
     Indication: Product used for unknown indication
     Route: 065
  8. VALTREX [Concomitant]
     Active Substance: VALACYCLOVIR HYDROCHLORIDE
     Indication: Product used for unknown indication
  9. ALBUTEROL\GUAIFENESIN [Concomitant]
     Active Substance: ALBUTEROL\GUAIFENESIN
     Indication: Product used for unknown indication
  10. ALBUTEROL\GUAIFENESIN [Concomitant]
     Active Substance: ALBUTEROL\GUAIFENESIN
     Indication: Product used for unknown indication
  11. ALBUTEROL SULFATE [Concomitant]
     Active Substance: ALBUTEROL SULFATE
     Indication: Product used for unknown indication
  12. VITAMIN C [Concomitant]
     Active Substance: ASCORBIC ACID
     Indication: Product used for unknown indication
  13. ASTAXANTHIN [Concomitant]
     Active Substance: ASTAXANTHIN
     Indication: Product used for unknown indication
  14. ESTROGEL [Concomitant]
     Active Substance: ESTRADIOL
     Indication: Product used for unknown indication
  15. HERBALS\TURMERIC [Concomitant]
     Active Substance: HERBALS\TURMERIC
     Indication: Product used for unknown indication
  16. CURCUMIN [Concomitant]
     Active Substance: CURCUMIN
     Indication: Product used for unknown indication
  17. NIACIN [Concomitant]
     Active Substance: NIACIN
     Indication: Product used for unknown indication
  18. ALLERGY [CHLORPHENAMINE MALEATE] [Concomitant]
     Indication: Product used for unknown indication
  19. HYZAAR [Concomitant]
     Active Substance: HYDROCHLOROTHIAZIDE\LOSARTAN POTASSIUM
     Indication: Product used for unknown indication
  20. NASONEX [Concomitant]
     Active Substance: MOMETASONE FUROATE
     Indication: Product used for unknown indication
  21. VITAMINS NOS [Concomitant]
     Active Substance: VITAMINS
     Indication: Product used for unknown indication
  22. ZYRTEC [Concomitant]
     Active Substance: CETIRIZINE HYDROCHLORIDE
     Indication: Product used for unknown indication
  23. SINGULAIR [Concomitant]
     Active Substance: MONTELUKAST SODIUM
     Indication: Product used for unknown indication
  24. RESTASIS [Concomitant]
     Active Substance: CYCLOSPORINE
     Indication: Product used for unknown indication
  25. SOMA COMPOUND [Concomitant]
     Active Substance: ASPIRIN\CARISOPRODOL
     Indication: Product used for unknown indication
  26. DULERA [Concomitant]
     Active Substance: FORMOTEROL FUMARATE DIHYDRATE\MOMETASONE FUROATE
     Indication: Product used for unknown indication
  27. WELLBUTRIN XL [Concomitant]
     Active Substance: BUPROPION HYDROCHLORIDE
     Indication: Product used for unknown indication
  28. DILTIAZEM HYDROCHLORIDE [Concomitant]
     Active Substance: DILTIAZEM HYDROCHLORIDE
     Indication: Product used for unknown indication
  29. NABUMETONE [Concomitant]
     Active Substance: NABUMETONE
     Indication: Product used for unknown indication
  30. ZANAFLEX [Concomitant]
     Active Substance: TIZANIDINE HYDROCHLORIDE
     Indication: Product used for unknown indication
  31. ERYTHROMYCIN [Concomitant]
     Active Substance: ERYTHROMYCIN
     Indication: Product used for unknown indication
  32. AZELASTINE [Concomitant]
     Active Substance: AZELASTINE
     Indication: Product used for unknown indication
  33. ACETAMINOPHEN\OXYCODONE HYDROCHLORIDE\OXYCODONE TEREPHTHALATE [Concomitant]
     Active Substance: ACETAMINOPHEN\OXYCODONE HYDROCHLORIDE\OXYCODONE TEREPHTHALATE
     Indication: Product used for unknown indication
  34. ACETAMINOPHEN [Concomitant]
     Active Substance: ACETAMINOPHEN
     Indication: Product used for unknown indication
  35. DIPHENHYDRAMINE [Concomitant]
     Active Substance: DIPHENHYDRAMINE
     Indication: Product used for unknown indication
  36. LIDOCAINE [Concomitant]
     Active Substance: LIDOCAINE
     Indication: Product used for unknown indication
  37. SODIUM CHLORIDE [Concomitant]
     Active Substance: SODIUM CHLORIDE
     Indication: Product used for unknown indication
  38. EPINEPHRINE [Concomitant]
     Active Substance: EPINEPHRINE
     Indication: Product used for unknown indication
  39. EPINEPHRINE [Concomitant]
     Active Substance: EPINEPHRINE
     Indication: Product used for unknown indication
  40. VENTOLIN HFA [Concomitant]
     Active Substance: ALBUTEROL SULFATE
     Indication: Product used for unknown indication
  41. VITAMIN C [Concomitant]
     Active Substance: ASCORBIC ACID
     Indication: Product used for unknown indication
  42. CARDIZEM CD [Concomitant]
     Active Substance: DILTIAZEM HYDROCHLORIDE
     Indication: Product used for unknown indication
  43. DEXILANT [Concomitant]
     Active Substance: DEXLANSOPRAZOLE
     Route: 065
  44. GINGER [Concomitant]
     Active Substance: GINGER
     Route: 065
  45. ACETYLCYSTEINE [Concomitant]
     Active Substance: ACETYLCYSTEINE
     Route: 065
  46. WHITE WILLOW BARK [Concomitant]
     Route: 065
  47. COLLAGENASE [Concomitant]
     Active Substance: COLLAGENASE CLOSTRIDIUM HISTOLYTICUM
     Route: 065
  48. SUDAFED [Concomitant]
     Active Substance: PSEUDOEPHEDRINE HYDROCHLORIDE
  49. ALIGN [Concomitant]
     Active Substance: BIFIDOBACTERIUM LONGUM SUBSP. INFANTIS
  50. FOLIC ACID [Concomitant]
     Active Substance: FOLIC ACID
  51. PFIZER-BIONTECH COVID-19 VACCINE [Concomitant]
     Active Substance: TOZINAMERAN
     Dosage: UNK
  52. Lmx [Concomitant]
  53. ACIPHEX [Concomitant]
     Active Substance: RABEPRAZOLE SODIUM
  54. NIACIN [Concomitant]
     Active Substance: NIACIN
  55. ARMOUR THYROID [Concomitant]
     Active Substance: THYROID, PORCINE

REACTIONS (10)
  - Aspiration [Unknown]
  - COVID-19 [Recovered/Resolved]
  - Sinusitis [Unknown]
  - Weight fluctuation [Unknown]
  - Gastrointestinal disorder [Unknown]
  - Pruritus [Unknown]
  - Infusion site haemorrhage [Unknown]
  - Infusion site pain [Unknown]
  - Multiple allergies [Unknown]
  - Suspected COVID-19 [Unknown]

NARRATIVE: CASE EVENT DATE: 20201028
